FAERS Safety Report 19372064 (Version 1)
Quarter: 2021Q2

REPORT INFORMATION
  Report Type: Spontaneous
  Country: CA (occurrence: CA)
  Receive Date: 20210604
  Receipt Date: 20210604
  Transmission Date: 20210717
  Serious: Yes (Hospitalization)
  Sender: FDA-Public Use
  Company Number: CA-TEVA-2021-CA-1917171

PATIENT
  Age: 72 Year
  Sex: Male

DRUGS (1)
  1. AMIODARONE [Suspect]
     Active Substance: AMIODARONE
     Dosage: 200 MILLIGRAM DAILY;
     Route: 048

REACTIONS (4)
  - Asthenia [Unknown]
  - Pneumonitis [Unknown]
  - Dyspnoea [Unknown]
  - Pneumonia [Unknown]
